FAERS Safety Report 6003458-X (Version None)
Quarter: 2008Q4

REPORT INFORMATION
  Report Type: 
  Country: None (occurrence: None)
  Receive Date: 20081215
  Receipt Date: 20081215
  Transmission Date: 20090506
  Serious: No
  Sender: FDA-Public Use
  Company Number: None

PATIENT
  Age: 54 Year
  Sex: Female
  Weight: 68.0396 kg

DRUGS (2)
  1. CHANTIX [Suspect]
     Indication: SMOKING CESSATION THERAPY
     Dates: start: 20061201, end: 20070301
  2. CHANTIX [Suspect]
     Indication: SMOKING CESSATION THERAPY
     Dates: start: 20061214, end: 20070314

REACTIONS (14)
  - ABNORMAL DREAMS [None]
  - ABNORMAL SLEEP-RELATED EVENT [None]
  - AMNESIA [None]
  - BLOOD GLUCOSE INCREASED [None]
  - DEPRESSION [None]
  - EUPHORIC MOOD [None]
  - FEAR [None]
  - MENTAL DISORDER [None]
  - MOOD SWINGS [None]
  - MULTIPLE ALLERGIES [None]
  - NAUSEA [None]
  - SOMNAMBULISM [None]
  - SUICIDAL IDEATION [None]
  - THINKING ABNORMAL [None]
